FAERS Safety Report 5099798-1 (Version None)
Quarter: 2006Q3

REPORT INFORMATION
  Report Type: 
  Country: None (occurrence: None)
  Receive Date: 20060906
  Receipt Date: 20060828
  Transmission Date: 20061208
  Serious: Yes (Hospitalization)
  Sender: FDA-Public Use
  Company Number: 2006103997

PATIENT
  Age: 68 Year
  Sex: Female
  Weight: 82 kg

DRUGS (8)
  1. ALDACTONE [Suspect]
     Indication: DRUG USE FOR UNKNOWN INDICATION
     Dosage: 50 MG (50 MG, EVERY DAY), ORAL
     Route: 048
     Dates: end: 20060705
  2. NEXIUM [Suspect]
     Indication: DRUG USE FOR UNKNOWN INDICATION
     Dosage: 1 DOSE FORM (EVERY DAY), ORAL
     Route: 048
  3. ZOLPIDEM TARTRATE [Suspect]
     Indication: DRUG USE FOR UNKNOWN INDICATION
     Dosage: 10 MG (10 MG, EVERY DAY), ORAL
     Route: 048
  4. DUPHALAC [Suspect]
     Indication: COMA HEPATIC
     Dosage: 3 DOSE FORMS (EVERY DAY), ORAL
     Route: 048
  5. ACETAMINOPHEN W/ PROPOXYPHENE HCL [Suspect]
     Indication: BACK PAIN
     Dosage: 4 DOSE FORMS (EVERY DAY), ORAL
     Route: 048
     Dates: start: 20060629, end: 20060703
  6. ACETAMINOPHEN W/ PROPOXYPHENE HCL [Suspect]
     Indication: BONE PAIN
     Dosage: 4 DOSE FORMS (EVERY DAY), ORAL
     Route: 048
     Dates: start: 20060629, end: 20060703
  7. DRUG, UNSPECIFIED (DRUG, UNSPECIFIED) [Concomitant]
  8. VITAMIN B1 AND B6 (PYRIDOXINE, THIAMINE) [Concomitant]

REACTIONS (10)
  - ASPARTATE AMINOTRANSFERASE INCREASED [None]
  - ASTHENIA [None]
  - BALANCE DISORDER [None]
  - BLOOD CREATININE INCREASED [None]
  - BLOOD PRESSURE SYSTOLIC INCREASED [None]
  - HEPATIC ENCEPHALOPATHY [None]
  - HEPATOMEGALY [None]
  - JAUNDICE [None]
  - NERVOUS SYSTEM DISORDER [None]
  - OEDEMA PERIPHERAL [None]
